FAERS Safety Report 9926256 (Version 2)
Quarter: 2014Q1

REPORT INFORMATION
  Report Type: Spontaneous
  Country: JP (occurrence: JP)
  Receive Date: 20140226
  Receipt Date: 20140226
  Transmission Date: 20141002
  Serious: Yes (Hospitalization, Other)
  Sender: FDA-Public Use
  Company Number: JP-B.I. PHARMACEUTICALS,INC./RIDGEFIELD-2014-BI-04268NB

PATIENT
  Age: 83 Year
  Sex: Female

DRUGS (8)
  1. MICAMLO COMBINATION [Suspect]
     Indication: HYPERTENSION
     Dosage: 1 ANZ
     Route: 048
     Dates: start: 20130726, end: 20140206
  2. ITOROL [Suspect]
     Indication: PRODUCT USED FOR UNKNOWN INDICATION
     Dosage: 40 MG
     Route: 048
  3. RYTHMODAN [Suspect]
     Indication: TACHYCARDIA
     Dosage: 300 MG
     Route: 048
     Dates: start: 20140127, end: 20140130
  4. BUFFERIN 81MG / ASPIRIN_DIALUMINATE [Concomitant]
     Dosage: 80 MG
     Route: 048
  5. CRESTOR / ROSUVASTATIN CALCIUM [Concomitant]
     Dosage: 2.5 MG
     Route: 048
  6. OMEPRAL / OMEPRAZOLE [Concomitant]
     Dosage: 20 MG
     Route: 048
  7. LOXONIN / LOXOPROFEN SODIUM HYDRATE [Concomitant]
     Dosage: 120 MG
     Route: 048
  8. RINLAXER / CHLORPHENESIN CARBAMATE [Concomitant]
     Dosage: 500 MG
     Route: 048

REACTIONS (4)
  - Compression fracture [Unknown]
  - Atrioventricular block first degree [Recovered/Resolved]
  - Tachycardia [Unknown]
  - Atrial fibrillation [Unknown]
